FAERS Safety Report 6429958-6 (Version None)
Quarter: 2009Q4

REPORT INFORMATION
  Report Type: 
  Country: None (occurrence: None)
  Receive Date: 20091106
  Receipt Date: 20091028
  Transmission Date: 20100525
  Serious: Yes (Other)
  Sender: FDA-Public Use
  Company Number: CA-BAYER-200936980NA

PATIENT
  Age: 42 Year
  Sex: Female
  Weight: 86 kg

DRUGS (1)
  1. YAZ [Suspect]
     Indication: CONTRACEPTION
     Route: 048

REACTIONS (2)
  - ABORTION INDUCED [None]
  - PREGNANCY ON ORAL CONTRACEPTIVE [None]
